FAERS Safety Report 13715382 (Version 1)
Quarter: 2017Q3

REPORT INFORMATION
  Report Type: Spontaneous
  Country: GB (occurrence: GB)
  Receive Date: 20170704
  Receipt Date: 20170704
  Transmission Date: 20171127
  Serious: Yes (Hospitalization)
  Sender: FDA-Public Use
  Company Number: GB-TEVA-781819ACC

PATIENT
  Age: 79 Year
  Sex: Male
  Weight: 104.3 kg

DRUGS (9)
  1. SALBUTAMOL [Concomitant]
     Active Substance: ALBUTEROL
     Dosage: ONE OR TWO PUFFS FOUR TIMES A DAY
     Route: 055
  2. IBUPROFEN. [Suspect]
     Active Substance: IBUPROFEN
     Indication: MUSCULOSKELETAL PAIN
     Dosage: 1200 MILLIGRAM DAILY;
     Route: 048
     Dates: start: 20170611, end: 20170612
  3. DUTASTERIDE. [Concomitant]
     Active Substance: DUTASTERIDE
     Dosage: 500 MICROGRAM DAILY; MORNING.
  4. SERETIDE [Concomitant]
     Active Substance: FLUTICASONE PROPIONATE\SALMETEROL XINAFOATE
     Dosage: 4 DOSAGE FORMS DAILY;
     Route: 055
  5. PIPERACILLIN [Concomitant]
     Active Substance: PIPERACILLIN
     Indication: ABDOMINAL INFECTION
     Dates: start: 201706
  6. TAMSULOSIN [Concomitant]
     Active Substance: TAMSULOSIN
     Dosage: 400 MICROGRAM DAILY; MORNING.
  7. TAZOBACTAM [Concomitant]
     Active Substance: TAZOBACTAM
     Indication: ABDOMINAL INFECTION
     Dates: start: 201706
  8. CODEINE [Suspect]
     Active Substance: CODEINE
     Dosage: RECOMMENDATION TO STOP OR REDUCE TO 30MG UP TO 4 TIMES A DAY WHEN REQUIRED.
     Dates: start: 20170611
  9. TRAMADOL. [Concomitant]
     Active Substance: TRAMADOL
     Dosage: ONE OR TWO UP TO FOUR TIMES A DAY.

REACTIONS (1)
  - Acute kidney injury [Recovering/Resolving]

NARRATIVE: CASE EVENT DATE: 20170612
